FAERS Safety Report 8374588-2 (Version None)
Quarter: 2012Q2

REPORT INFORMATION
  Report Type: 
  Country: None (occurrence: None)
  Receive Date: 20120521
  Receipt Date: 20120515
  Transmission Date: 20120825
  Serious: Yes (Hospitalization)
  Sender: FDA-Public Use
  Company Number: JP-ABBOTT-12P-087-0921258-00

PATIENT
  Sex: Male
  Weight: 54.5 kg

DRUGS (8)
  1. FAMOTIDINE [Concomitant]
     Indication: PRODUCT USED FOR UNKNOWN INDICATION
     Dosage: 20 MG DAILY DOSE
     Route: 048
  2. MESALAMINE [Concomitant]
     Indication: CROHN'S DISEASE
     Dosage: 1500MG DAILY DOSE
     Route: 048
     Dates: end: 20110213
  3. AZATHIOPRINE [Concomitant]
     Indication: CROHN'S DISEASE
     Dosage: 50MG DAILY DOSE
     Route: 048
  4. SUCRALFATE HYDRATE [Concomitant]
     Indication: PRODUCT USED FOR UNKNOWN INDICATION
     Dosage: 3 GM DAILY DOSE
     Route: 048
  5. HUMIRA [Suspect]
     Dosage: (800MG)
     Dates: start: 20110104, end: 20110104
  6. TIQUIZIUM BROMIDE [Concomitant]
     Indication: PRODUCT USED FOR UNKNOWN INDICATION
     Dosage: 30 MG DAILY DOSE
     Route: 048
  7. HUMIRA [Suspect]
     Indication: CROHN'S DISEASE
     Dosage: (160MG)
     Route: 058
     Dates: start: 20101221, end: 20101221
  8. HUMIRA [Suspect]
     Dates: start: 20110118, end: 20110201

REACTIONS (7)
  - BRAIN OEDEMA [None]
  - DYSGRAPHIA [None]
  - VASCULITIS CEREBRAL [None]
  - AUTOIMMUNE DISORDER [None]
  - CEREBRAL HAEMORRHAGE [None]
  - VASCULITIS [None]
  - HEMIPLEGIA [None]
